FAERS Safety Report 5578151-8 (Version None)
Quarter: 2007Q4

REPORT INFORMATION
  Report Type: 
  Country: None (occurrence: None)
  Receive Date: 20071231
  Receipt Date: 20071220
  Transmission Date: 20080405
  Serious: Yes (Life-Threatening, Other)
  Sender: FDA-Public Use
  Company Number: US-PFIZER INC-2007075157

PATIENT
  Age: 67 Year
  Sex: Male
  Weight: 95.3 kg

DRUGS (3)
  1. LYRICA [Suspect]
     Indication: NEUROPATHY
     Route: 048
  2. ROXICODONE [Concomitant]
     Route: 048
  3. MS CONTIN [Concomitant]
     Route: 048

REACTIONS (7)
  - BACK PAIN [None]
  - CONVULSION [None]
  - GRAND MAL CONVULSION [None]
  - MYOPATHY [None]
  - PARAESTHESIA [None]
  - PROSTATE CANCER METASTATIC [None]
  - RADICULOPATHY [None]
